FAERS Safety Report 4601823-6 (Version None)
Quarter: 2005Q1

REPORT INFORMATION
  Report Type: 
  Country: None (occurrence: None)
  Receive Date: 20050308
  Receipt Date: 20050304
  Transmission Date: 20050727
  Serious: Yes (Life-Threatening, Hospitalization, Disabling)
  Sender: FDA-Public Use
  Company Number: PHEH2005US02795

PATIENT
  Sex: Female

DRUGS (3)
  1. LOTENSIN [Suspect]
  2. BAYCOL [Suspect]
  3. PRAVACHOL [Concomitant]

REACTIONS (3)
  - MUSCLE SPASMS [None]
  - MYALGIA [None]
  - STOMACH DISCOMFORT [None]
